FAERS Safety Report 8214081-0 (Version None)
Quarter: 2012Q1

REPORT INFORMATION
  Report Type: 
  Country: None (occurrence: None)
  Receive Date: 20120314
  Receipt Date: 20120314
  Transmission Date: 20120608
  Serious: Yes (Hospitalization)
  Sender: FDA-Public Use
  Company Number: None

PATIENT
  Age: 75 Year
  Sex: Male
  Weight: 79.8 kg

DRUGS (2)
  1. WARFARIN SODIUM [Suspect]
  2. AMIODARONE HYDROCHLORIDE [Suspect]

REACTIONS (2)
  - DYSPNOEA [None]
  - INTERNATIONAL NORMALISED RATIO ABNORMAL [None]
